APPROVED DRUG PRODUCT: PROPANTHELINE BROMIDE
Active Ingredient: PROPANTHELINE BROMIDE
Strength: 15MG
Dosage Form/Route: TABLET;ORAL
Application: A087663 | Product #001
Applicant: ASCOT HOSP PHARMACEUTICALS INC DIV TRAVENOL LABORATORIES INC
Approved: Oct 25, 1982 | RLD: No | RS: No | Type: DISCN